FAERS Safety Report 14800829 (Version 1)
Quarter: 2018Q2

REPORT INFORMATION
  Report Type: Spontaneous
  Country: US (occurrence: US)
  Receive Date: 20180424
  Receipt Date: 20180424
  Transmission Date: 20180711
  Serious: No
  Sender: FDA-Public Use
  Company Number: US-TEVA-2018-US-885473

PATIENT
  Sex: Female

DRUGS (1)
  1. TELMISARTAN. [Suspect]
     Active Substance: TELMISARTAN

REACTIONS (11)
  - Muscle spasms [Unknown]
  - Hyperhidrosis [Unknown]
  - Tinnitus [Unknown]
  - Condition aggravated [Unknown]
  - Rash [Unknown]
  - Palpitations [Unknown]
  - Pruritus [Unknown]
  - Feeling abnormal [Unknown]
  - Wrong technique in product usage process [Unknown]
  - Dizziness [Unknown]
  - Sinusitis [Unknown]
